FAERS Safety Report 9053537 (Version 1)
Quarter: 2013Q1

REPORT INFORMATION
  Report Type: Spontaneous
  Country: US (occurrence: None)
  Receive Date: 20130201
  Receipt Date: 20130201
  Transmission Date: 20140127
  Serious: Yes (Other)
  Sender: FDA-Public Use
  Company Number: None

PATIENT
  Age: 78 Year
  Sex: Male
  Weight: 65.77 kg

DRUGS (1)
  1. JALYN 0.5 MG/04 MG GLAXOSMITHKLINE [Suspect]
     Indication: PROSTATOMEGALY
     Dosage: 1 CAPSULE DAILY
     Dates: start: 20130129, end: 20130130

REACTIONS (1)
  - Toothache [None]
